FAERS Safety Report 13763496 (Version 17)
Quarter: 2021Q2

REPORT INFORMATION
  Report Type: Spontaneous
  Country: BR (occurrence: BR)
  Receive Date: 20170718
  Receipt Date: 20210607
  Transmission Date: 20210716
  Serious: Yes (Other)
  Sender: FDA-Public Use
  Company Number: BR-GLAXOSMITHKLINE-BR2016GSK094878

PATIENT
  Sex: Female
  Weight: 117 kg

DRUGS (1)
  1. BENLYSTA [Suspect]
     Active Substance: BELIMUMAB
     Indication: SYSTEMIC LUPUS ERYTHEMATOSUS
     Dosage: 400 MG, UNK, 3 AMPOULES
     Route: 042
     Dates: start: 20140902

REACTIONS (21)
  - Dysphagia [Recovered/Resolved]
  - Product dose omission issue [Unknown]
  - Erythema [Recovered/Resolved]
  - Skin disorder [Recovered/Resolved]
  - Swelling face [Recovered/Resolved]
  - Rash [Recovered/Resolved]
  - Pharyngeal swelling [Recovered/Resolved]
  - Influenza [Recovered/Resolved]
  - Circumstance or information capable of leading to medication error [Unknown]
  - Sudden hearing loss [Recovered/Resolved]
  - Inappropriate schedule of product administration [Unknown]
  - Social problem [Unknown]
  - Hypersensitivity [Recovered/Resolved]
  - Rash macular [Recovered/Resolved]
  - Pharyngeal paraesthesia [Recovered/Resolved]
  - Drug hypersensitivity [Recovered/Resolved]
  - Dyspnoea [Recovered/Resolved]
  - Ear infection [Recovered/Resolved]
  - Condition aggravated [Recovered/Resolved]
  - Paraesthesia oral [Recovered/Resolved]
  - Product availability issue [Unknown]
